FAERS Safety Report 5872268-6 (Version None)
Quarter: 2008Q3

REPORT INFORMATION
  Report Type: 
  Country: None (occurrence: None)
  Receive Date: 20080905
  Receipt Date: 20080828
  Transmission Date: 20090109
  Serious: Yes (Hospitalization)
  Sender: FDA-Public Use
  Company Number: DE-MERCK-0807DEU00081

PATIENT
  Age: 70 Year
  Sex: Female
  Weight: 63 kg

DRUGS (11)
  1. INVANZ [Suspect]
     Indication: PNEUMONIA
     Route: 042
     Dates: start: 20080324, end: 20080330
  2. BELOC-ZOK [Concomitant]
     Indication: HYPERTENSION
     Route: 048
     Dates: start: 20080319, end: 20080414
  3. BELOC-ZOK [Concomitant]
     Route: 048
     Dates: end: 20080318
  4. PANTOZOL [Concomitant]
     Indication: PROPHYLAXIS AGAINST GASTROINTESTINAL ULCER
     Route: 048
     Dates: start: 20080319, end: 20080414
  5. EUTHYROX [Concomitant]
     Indication: HYPERTHYROIDISM
     Route: 048
     Dates: end: 20080414
  6. GENTAMICIN [Concomitant]
     Indication: PNEUMONIA
     Route: 042
     Dates: start: 20080324, end: 20080331
  7. AUGMENTIN '125' [Concomitant]
     Indication: PNEUMONIA
     Route: 065
     Dates: start: 20080301, end: 20080301
  8. AVELOX [Concomitant]
     Indication: PNEUMONIA
     Route: 065
     Dates: start: 20080301, end: 20080301
  9. GENTAMICIN [Concomitant]
     Indication: PNEUMONIA
     Route: 065
     Dates: start: 20080301, end: 20080301
  10. CEFPODOXIME PROXETIL [Concomitant]
     Indication: PNEUMONIA
     Route: 065
     Dates: start: 20080318, end: 20080301
  11. AMPICILLIN [Suspect]
     Route: 065
     Dates: end: 20080301

REACTIONS (19)
  - ABASIA [None]
  - ALOPECIA [None]
  - ANAL FUNGAL INFECTION [None]
  - BRONCHOPNEUMONIA [None]
  - DERMATITIS ALLERGIC [None]
  - DIARRHOEA [None]
  - EATING DISORDER [None]
  - GENITAL INFECTION FUNGAL [None]
  - GLOSSODYNIA [None]
  - HYPOAESTHESIA ORAL [None]
  - ORAL CANDIDIASIS [None]
  - PALMAR ERYTHEMA [None]
  - PETECHIAE [None]
  - SKIN BURNING SENSATION [None]
  - SKIN DISCOLOURATION [None]
  - SKIN EXFOLIATION [None]
  - SKIN WRINKLING [None]
  - URINARY TRACT INFECTION [None]
  - URTICARIA [None]
